FAERS Safety Report 9796471 (Version 2)
Quarter: 2014Q1

REPORT INFORMATION
  Report Type: Spontaneous
  Country: JP (occurrence: JP)
  Receive Date: 20140103
  Receipt Date: 20140226
  Transmission Date: 20141002
  Serious: Yes (Death, Hospitalization)
  Sender: FDA-Public Use
  Company Number: JP-LUNDBECK-DKLU1096364

PATIENT
  Age: 74 Year
  Sex: Female

DRUGS (5)
  1. MYSTAN [Suspect]
     Indication: EPILEPSY
     Route: 048
     Dates: start: 20120221, end: 20120430
  2. MYSTAN [Suspect]
     Route: 048
     Dates: start: 20120731
  3. LEVETIRACETAM [Suspect]
     Indication: EPILEPSY
     Route: 048
  4. LAMOTRIGINE [Suspect]
     Indication: EPILEPSY
     Route: 048
     Dates: start: 20120619, end: 20120806
  5. DEPAKENE-R [Suspect]
     Indication: EPILEPSY
     Route: 048
     Dates: start: 20120501, end: 20120730

REACTIONS (1)
  - Drug reaction with eosinophilia and systemic symptoms [Fatal]
